FAERS Safety Report 23660974 (Version 1)
Quarter: 2024Q1

REPORT INFORMATION
  Report Type: Spontaneous
  Country: US (occurrence: US)
  Receive Date: 20240322
  Receipt Date: 20240322
  Transmission Date: 20240409
  Serious: No
  Sender: FDA-Public Use
  Company Number: US-TEVA-VS-3148527

PATIENT
  Age: 81 Year
  Sex: Female

DRUGS (7)
  1. ALBUTEROL SULFATE [Suspect]
     Active Substance: ALBUTEROL SULFATE
     Indication: Product used for unknown indication
     Dosage: DOSE FORM: HFA INHALER
     Route: 055
  2. ALBUTEROL SULFATE [Suspect]
     Active Substance: ALBUTEROL SULFATE
  3. ALBUTEROL SULFATE [Suspect]
     Active Substance: ALBUTEROL SULFATE
  4. ALBUTEROL SULFATE [Suspect]
     Active Substance: ALBUTEROL SULFATE
  5. PROAIR HFA [Interacting]
     Active Substance: ALBUTEROL SULFATE
  6. nebulized Albuterol Sulphate 0.083% Solution [Concomitant]
  7. FLOVENT [Concomitant]
     Active Substance: FLUTICASONE PROPIONATE

REACTIONS (6)
  - Taste disorder [Unknown]
  - Intercepted medication error [Unknown]
  - Taste disorder [Unknown]
  - Expired product administered [Unknown]
  - Therapy change [Unknown]
  - Nosocomial infection [Recovered/Resolved]
